FAERS Safety Report 16230345 (Version 1)
Quarter: 2019Q2

REPORT INFORMATION
  Report Type: Spontaneous
  Country: US (occurrence: US)
  Receive Date: 20190319
  Receipt Date: 20190319
  Transmission Date: 20190711
  Serious: No
  Sender: FDA-Public Use
  Company Number: None

PATIENT
  Age: 79 Year
  Sex: Female
  Weight: 53.98 kg

DRUGS (2)
  1. BETAMETHASONE AND CLOTRIMAZOLE CREAM 1-0.05% CRE [Suspect]
     Active Substance: BETAMETHASONE DIPROPIONATE\CLOTRIMAZOLE
     Indication: DERMATITIS
     Dosage: ?          QUANTITY:1-0.005 PERCENT;?
     Route: 061
     Dates: start: 20190304
  2. BETAMETHASONE AND CLOTRIMAZOLE CREAM 1-0.05% CRE [Suspect]
     Active Substance: BETAMETHASONE DIPROPIONATE\CLOTRIMAZOLE
     Indication: FUNGAL INFECTION
     Dosage: ?          QUANTITY:1-0.005 PERCENT;?
     Route: 061
     Dates: start: 20190304

REACTIONS (7)
  - Hypertension [None]
  - Nausea [None]
  - Vertigo [None]
  - Headache [None]
  - Dizziness [None]
  - Head injury [None]
  - Skin disorder [None]

NARRATIVE: CASE EVENT DATE: 20190304
